FAERS Safety Report 25276509 (Version 3)
Quarter: 2025Q2

REPORT INFORMATION
  Report Type: Report from Study
  Country: US (occurrence: US)
  Receive Date: 20250507
  Receipt Date: 20250528
  Transmission Date: 20250716
  Serious: Yes (Other)
  Sender: ABBVIE
  Company Number: US-ABBVIE-6263865

PATIENT
  Age: 63 Year
  Sex: Male

DRUGS (1)
  1. SKYRIZI [Suspect]
     Active Substance: RISANKIZUMAB-RZAA
     Indication: Psoriatic arthropathy
     Route: 058
     Dates: start: 20230522, end: 202311

REACTIONS (7)
  - Intervertebral disc degeneration [Unknown]
  - Arthritis [Not Recovered/Not Resolved]
  - Ulcer [Recovering/Resolving]
  - Rash [Not Recovered/Not Resolved]
  - Immune system disorder [Unknown]
  - Symptom recurrence [Unknown]
  - Seasonal allergy [Unknown]

NARRATIVE: CASE EVENT DATE: 20241201
